FAERS Safety Report 9057447 (Version 3)
Quarter: 2013Q1

REPORT INFORMATION
  Report Type: Report from Study
  Country: ES (occurrence: ES)
  Receive Date: 20130204
  Receipt Date: 20130208
  Transmission Date: 20140127
  Serious: Yes (Hospitalization)
  Sender: FDA-Public Use
  Company Number: ES-PFIZER INC-2013031121

PATIENT
  Age: 72 Year
  Sex: Male
  Weight: 91.7 kg

DRUGS (7)
  1. TEMSIROLIMUS [Suspect]
     Indication: PROSTATE CANCER
     Dosage: 15 MG, CYCLIC (TWICE EVERY 3 WEEKS)
     Dates: start: 20121115
  2. DOCETAXEL [Suspect]
     Indication: PROSTATE CANCER
     Dosage: 105 MG, CYCLIC (EVERY 21 DAYS)
     Dates: start: 20121114
  3. CALCIUM [Concomitant]
     Dosage: UNK
     Route: 048
  4. AMERIDE [Concomitant]
     Indication: HYPERTENSION
     Dosage: UNK
     Route: 048
  5. ZOMETA [Concomitant]
     Indication: PROSTATE CANCER
     Dosage: UNK
     Route: 042
  6. SEGURIL [Concomitant]
     Indication: DIURETIC THERAPY
     Dosage: UNK
     Route: 048
  7. ZOLADEX [Concomitant]
     Indication: PROSTATE CANCER
     Dosage: UNK
     Route: 042

REACTIONS (1)
  - Febrile neutropenia [Not Recovered/Not Resolved]
